FAERS Safety Report 23772233 (Version 1)
Quarter: 2024Q2

REPORT INFORMATION
  Report Type: Spontaneous
  Country: US (occurrence: US)
  Receive Date: 20240423
  Receipt Date: 20240423
  Transmission Date: 20240715
  Serious: No
  Sender: FDA-Public Use
  Company Number: US-ALCON LABORATORIES-ALC2023US001395

PATIENT
  Age: 60 Year
  Sex: Male

DRUGS (1)
  1. TETRACAINE HCL [Suspect]
     Active Substance: TETRACAINE HYDROCHLORIDE
     Indication: Therapeutic procedure
     Dosage: SEVERAL DROPS ADMINISTERED PRIOR TO SURGERY AND DURING SURGERY
     Route: 047

REACTIONS (5)
  - Drug ineffective [Unknown]
  - Ocular discomfort [Recovered/Resolved]
  - Condition aggravated [Recovered/Resolved]
  - Eye pain [Recovered/Resolved]
  - Eye irritation [Recovered/Resolved]

NARRATIVE: CASE EVENT DATE: 20230314
